FAERS Safety Report 24761276 (Version 1)
Quarter: 2024Q4

REPORT INFORMATION
  Report Type: Spontaneous
  Country: US (occurrence: US)
  Receive Date: 20241220
  Receipt Date: 20241220
  Transmission Date: 20250114
  Serious: No
  Sender: BAYER HEALTHCARE PHARMACEUTICALS INC.
  Company Number: US-BAYER-2024A177740

PATIENT
  Age: 16 Year
  Sex: Female

DRUGS (5)
  1. ESTRADIOL [Suspect]
     Active Substance: ESTRADIOL
     Indication: Amenorrhoea
     Dosage: UNK
  2. PHOSLO [Concomitant]
     Active Substance: CALCIUM ACETATE
  3. CALCITRIOL [Concomitant]
     Active Substance: CALCITRIOL
  4. PROGESTERONE [Concomitant]
     Active Substance: PROGESTERONE
     Indication: Amenorrhoea
  5. ESTROGENS [Concomitant]
     Active Substance: ESTROGENS
     Indication: Amenorrhoea
     Dosage: UNK

REACTIONS (2)
  - Product use issue [None]
  - Product use in unapproved indication [None]
